FAERS Safety Report 6643505-5 (Version None)
Quarter: 2010Q1

REPORT INFORMATION
  Report Type: 
  Country: None (occurrence: None)
  Receive Date: 20100319
  Receipt Date: 20100313
  Transmission Date: 20100710
  Serious: Yes (Hospitalization, Other)
  Sender: FDA-Public Use
  Company Number: US-AMGEN-QUU399616

PATIENT
  Sex: Male

DRUGS (1)
  1. ENBREL [Suspect]
     Indication: RHEUMATOID ARTHRITIS
     Route: 058
     Dates: start: 19981101

REACTIONS (7)
  - BLOOD BLISTER [None]
  - CARTILAGE INJURY [None]
  - HAEMORRHAGE [None]
  - LOOSE TOOTH [None]
  - PAIN OF SKIN [None]
  - POST PROCEDURAL INFECTION [None]
  - RHEUMATOID ARTHRITIS [None]
